FAERS Safety Report 12808658 (Version 2)
Quarter: 2017Q1

REPORT INFORMATION
  Report Type: Spontaneous
  Country: JP (occurrence: JP)
  Receive Date: 20161004
  Receipt Date: 20170331
  Transmission Date: 20170428
  Serious: Yes (Other)
  Sender: FDA-Public Use
  Company Number: PHJP2016JP027843

PATIENT
  Sex: Female

DRUGS (3)
  1. EVEROLIMUS [Suspect]
     Active Substance: EVEROLIMUS
     Indication: GASTROENTEROPANCREATIC NEUROENDOCRINE TUMOUR DISEASE
     Dosage: UNK
     Route: 048
  2. SUNITINIB [Concomitant]
     Active Substance: SUNITINIB
     Indication: GASTROENTEROPANCREATIC NEUROENDOCRINE TUMOUR DISEASE
     Dosage: UNK
     Route: 065
  3. SANDOSTATINA LAR IM INJECTION [Suspect]
     Active Substance: OCTREOTIDE ACETATE
     Indication: GASTROENTEROPANCREATIC NEUROENDOCRINE TUMOUR DISEASE
     Dosage: 30 MG, UNK
     Route: 030

REACTIONS (1)
  - Blood corticotrophin increased [Recovered/Resolved]
